FAERS Safety Report 10248675 (Version 1)
Quarter: 2014Q2

REPORT INFORMATION
  Report Type: Spontaneous
  Country: US (occurrence: US)
  Receive Date: 20140620
  Receipt Date: 20140620
  Transmission Date: 20141212
  Serious: No
  Sender: FDA-Public Use
  Company Number: US-BAYER-2014-090241

PATIENT
  Age: 74 Year
  Sex: Female

DRUGS (1)
  1. BETASERON [Suspect]
     Dosage: UNK, UNK UNK
     Dates: start: 2000, end: 2004

REACTIONS (1)
  - Alopecia [Not Recovered/Not Resolved]
